FAERS Safety Report 21618509 (Version 1)
Quarter: 2022Q4

REPORT INFORMATION
  Report Type: Report from Study
  Country: US (occurrence: US)
  Receive Date: 20221119
  Receipt Date: 20221119
  Transmission Date: 20230112
  Serious: No
  Sender: FDA-Public Use
  Company Number: US-ABBVIE-4186714

PATIENT
  Age: 43 Year
  Sex: Female

DRUGS (2)
  1. SKYRIZI [Suspect]
     Active Substance: RISANKIZUMAB-RZAA
     Indication: Psoriasis
     Route: 058
  2. SKYRIZI [Suspect]
     Active Substance: RISANKIZUMAB-RZAA
     Indication: Psoriasis

REACTIONS (6)
  - Abdominal pain [Recovering/Resolving]
  - Dizziness [Unknown]
  - Pain [Not Recovered/Not Resolved]
  - Hyperhidrosis [Not Recovered/Not Resolved]
  - Abdominal distension [Recovered/Resolved]
  - Sinusitis [Unknown]

NARRATIVE: CASE EVENT DATE: 20220101
